FAERS Safety Report 4976763-3 (Version None)
Quarter: 2006Q2

REPORT INFORMATION
  Report Type: 
  Country: None (occurrence: None)
  Receive Date: 20060419
  Receipt Date: 20060415
  Transmission Date: 20061013
  Serious: Yes (Life-Threatening, Hospitalization)
  Sender: FDA-Public Use
  Company Number: CEATOX N 4789

PATIENT
  Age: 2 Year
  Sex: Female

DRUGS (1)
  1. CLAVULIN [Suspect]
     Indication: DRUG USE FOR UNKNOWN INDICATION
     Dosage: 7ML TWICE PER DAY
     Route: 048
     Dates: start: 20060411, end: 20060413

REACTIONS (4)
  - EPISTAXIS [None]
  - GINGIVAL BLEEDING [None]
  - PETECHIAE [None]
  - PLATELET COUNT DECREASED [None]
